FAERS Safety Report 19839228 (Version 1)
Quarter: 2021Q3

REPORT INFORMATION
  Report Type: Report from Study
  Country: US (occurrence: US)
  Receive Date: 20210915
  Receipt Date: 20210915
  Transmission Date: 20211014
  Serious: Yes (Death)
  Sender: FDA-Public Use
  Company Number: US-CELGENEUS-USA-20210903064

PATIENT
  Age: 71 Year
  Sex: Female
  Weight: 74.9 kg

DRUGS (22)
  1. REVLIMID [Suspect]
     Active Substance: LENALIDOMIDE
     Dosage: 25 MILLIGRAM
     Route: 048
     Dates: start: 20160421, end: 20160918
  2. VELCADE [Suspect]
     Active Substance: BORTEZOMIB
     Dosage: 1X WEEKLY, NO REST PERIOD: DAY 1 Q.7D
     Route: 058
     Dates: start: 20160421, end: 20160918
  3. CYCLOPHOSPHAMIDE. [Suspect]
     Active Substance: CYCLOPHOSPHAMIDE
     Route: 048
     Dates: start: 20161119, end: 20170328
  4. MELPHALAN. [Suspect]
     Active Substance: MELPHALAN
     Route: 041
     Dates: start: 20170515, end: 20170516
  5. REVLIMID [Suspect]
     Active Substance: LENALIDOMIDE
     Dosage: 15 MILLIGRAM
     Route: 048
     Dates: start: 20160122, end: 20160420
  6. BELANTAMAB MAFODOTIN. [Suspect]
     Active Substance: BELANTAMAB MAFODOTIN
     Indication: PLASMA CELL MYELOMA
     Route: 041
     Dates: start: 20210505, end: 20210601
  7. VELCADE [Suspect]
     Active Substance: BORTEZOMIB
     Dosage: 1X WEEKLY, NO REST PERIOD: DAY 1 Q.7D
     Route: 058
     Dates: start: 20160919, end: 20161117
  8. CARFILZOMIB [Suspect]
     Active Substance: CARFILZOMIB
     Indication: PLASMA CELL MYELOMA
  9. REVLIMID [Suspect]
     Active Substance: LENALIDOMIDE
     Dosage: 5 MILLIGRAM
     Route: 048
     Dates: start: 20111207, end: 20141204
  10. VELCADE [Suspect]
     Active Substance: BORTEZOMIB
     Indication: PLASMA CELL MYELOMA
     Dosage: 2X WK, DAYS 1 AND 4 Q.7D, 1 WK OFF Q.14D
     Route: 041
     Dates: start: 20100730, end: 20100907
  11. MELPHALAN. [Suspect]
     Active Substance: MELPHALAN
     Indication: PLASMA CELL MYELOMA
     Dosage: 200 MILLIGRAM/SQ. METER
     Route: 041
     Dates: start: 20101206, end: 20101206
  12. DECADRON [Suspect]
     Active Substance: DEXAMETHASONE
     Indication: PLASMA CELL MYELOMA
     Route: 048
     Dates: start: 20100730, end: 20100907
  13. CARFILZOMIB [Suspect]
     Active Substance: CARFILZOMIB
     Indication: PLASMA CELL MYELOMA
     Route: 041
     Dates: start: 20161119, end: 20170328
  14. REVLIMID [Suspect]
     Active Substance: LENALIDOMIDE
     Indication: PLASMA CELL MYELOMA
     Dosage: 5 MILLIGRAM
     Route: 048
     Dates: start: 20110315, end: 20111206
  15. DECADRON [Suspect]
     Active Substance: DEXAMETHASONE
     Route: 041
     Dates: start: 20161119, end: 20170328
  16. DECADRON [Suspect]
     Active Substance: DEXAMETHASONE
     Dosage: 16 MILLIGRAM
     Route: 048
     Dates: start: 20170901, end: 20210505
  17. CARFILZOMIB [Suspect]
     Active Substance: CARFILZOMIB
     Indication: PLASMA CELL MYELOMA
  18. ELOTUZUMAB. [Suspect]
     Active Substance: ELOTUZUMAB
     Indication: PLASMA CELL MYELOMA
     Dosage: 10 MILLIGRAM
     Route: 041
     Dates: start: 20170901, end: 20210505
  19. REVLIMID [Suspect]
     Active Substance: LENALIDOMIDE
     Dosage: 10 MILLIGRAM
     Route: 048
     Dates: start: 20141204, end: 20160122
  20. REVLIMID [Suspect]
     Active Substance: LENALIDOMIDE
     Dosage: 5 MILLIGRAM
     Route: 048
     Dates: start: 20170901, end: 20210505
  21. CYCLOPHOSPHAMIDE. [Suspect]
     Active Substance: CYCLOPHOSPHAMIDE
     Indication: PLASMA CELL MYELOMA
     Route: 048
     Dates: start: 20100730, end: 20100907
  22. CYCLOPHOSPHAMIDE. [Suspect]
     Active Substance: CYCLOPHOSPHAMIDE
     Route: 048
     Dates: start: 20160919, end: 20161117

REACTIONS (1)
  - Death [Fatal]

NARRATIVE: CASE EVENT DATE: 20210907
